FAERS Safety Report 8171670-X (Version None)
Quarter: 2012Q1

REPORT INFORMATION
  Report Type: 
  Country: None (occurrence: None)
  Receive Date: 20120104
  Receipt Date: 20111108
  Transmission Date: 20120608
  Serious: No
  Sender: FDA-Public Use
  Company Number: 2011HGS-002759

PATIENT
  Age: 74 Year
  Sex: Female
  Weight: 72.5755 kg

DRUGS (18)
  1. BENLYSTA [Suspect]
     Indication: SYSTEMIC LUPUS ERYTHEMATOSUS
     Dosage: 1 IN 28 D, INTRAVENOUS DRIP
     Route: 041
     Dates: start: 20110724
  2. HYDROXYCHLOROQUINE (HYDROXYCHLOROQUINE) (HYDROXYCHLOROQUINE) [Concomitant]
  3. FENOFIBRATE [Concomitant]
  4. PRIMIDONE (PRIMIDONE) (PRIMIDONE) [Concomitant]
  5. LISINOPRIL [Concomitant]
  6. MELOXICAM [Concomitant]
  7. RECLAST (ZOLEDRONC ACID) [Concomitant]
  8. MULTIVITAMIN (MVI) (VITAMINS NOS) [Concomitant]
  9. METHOTREXATE [Concomitant]
  10. LEXAPRO (ESCITALOPRAM OXALATE) (ESCITALOPRAM OXALATE) [Concomitant]
  11. SIMVASTATIN [Concomitant]
  12. ENABLEX (DARIFENACIN) [Concomitant]
  13. CHLORZOSAZONE (CHLORZOXAZONE) (CHLORZOXAZONE) [Concomitant]
  14. ASPIRIN [Concomitant]
  15. FISH OIL (FISH OIL) (FISH OIL) [Concomitant]
  16. NEXIUM [Concomitant]
  17. ATENOLOL [Concomitant]
  18. FOLIC ACID [Concomitant]

REACTIONS (6)
  - POLLAKIURIA [None]
  - INFUSION RELATED REACTION [None]
  - TREMOR [None]
  - FEELING COLD [None]
  - DYSURIA [None]
  - CYSTITIS [None]
